FAERS Safety Report 4977082-1 (Version None)
Quarter: 2006Q2

REPORT INFORMATION
  Report Type: 
  Country: None (occurrence: None)
  Receive Date: 20060419
  Receipt Date: 20060329
  Transmission Date: 20061013
  Serious: Yes (Hospitalization)
  Sender: FDA-Public Use
  Company Number: IT-BOEHRINGER INGELHEIM PHARMACEUTICALS, INC.-2006-IT-00078IT

PATIENT
  Sex: Female

DRUGS (2)
  1. VIRAMUNE [Suspect]
     Indication: HIV INFECTION
  2. SUSTIVA [Suspect]
     Indication: HIV INFECTION

REACTIONS (3)
  - HEADACHE [None]
  - PANCREATITIS [None]
  - STEVENS-JOHNSON SYNDROME [None]
